FAERS Safety Report 17927760 (Version 1)
Quarter: 2020Q2

REPORT INFORMATION
  Report Type: Other
  Country: US (occurrence: US)
  Receive Date: 20200622
  Receipt Date: 20200622
  Transmission Date: 20200714
  Serious: Yes (Other)
  Sender: FDA-Public Use
  Company Number: US-PRINSTON PHARMACEUTICAL INC.-2019PRN00527

PATIENT
  Age: 77 Year
  Sex: Female
  Weight: 72.56 kg

DRUGS (3)
  1. UNSPECIFIED SUPPLEMENTAL ANTIDEPRESSANT [Suspect]
     Active Substance: UNSPECIFIED INGREDIENT
  2. CARVEDILOL. [Concomitant]
     Active Substance: CARVEDILOL
  3. VALSARTAN. [Suspect]
     Active Substance: VALSARTAN
     Indication: BLOOD PRESSURE ABNORMAL
     Dosage: 25 MG, 1X/DAY
     Route: 048
     Dates: start: 2011

REACTIONS (27)
  - Heart rate irregular [Not Recovered/Not Resolved]
  - Balance disorder [Unknown]
  - Mood swings [Unknown]
  - Tremor [Recovered/Resolved]
  - Dizziness [Recovered/Resolved]
  - Panic attack [Recovering/Resolving]
  - Hyperhidrosis [Recovering/Resolving]
  - Insomnia [Not Recovered/Not Resolved]
  - Visual impairment [Not Recovered/Not Resolved]
  - Sleep terror [Not Recovered/Not Resolved]
  - Vision blurred [Not Recovered/Not Resolved]
  - Anger [Unknown]
  - Hyperventilation [Not Recovered/Not Resolved]
  - Social anxiety disorder [Not Recovered/Not Resolved]
  - Pain [Recovered/Resolved]
  - Dyspepsia [Recovered/Resolved]
  - Anxiety [Recovered/Resolved]
  - Asthenia [Not Recovered/Not Resolved]
  - Syncope [Recovered/Resolved]
  - Impatience [Unknown]
  - Crying [Recovering/Resolving]
  - Heart rate increased [Not Recovered/Not Resolved]
  - Dysphagia [Recovering/Resolving]
  - Disorientation [Recovered/Resolved]
  - Hypertension [Not Recovered/Not Resolved]
  - Choking [Unknown]
  - Confusional state [Unknown]

NARRATIVE: CASE EVENT DATE: 2011
